FAERS Safety Report 21872963 (Version 1)
Quarter: 2023Q1

REPORT INFORMATION
  Report Type: Spontaneous
  Country: GR (occurrence: GR)
  Receive Date: 20230117
  Receipt Date: 20230117
  Transmission Date: 20230418
  Serious: Yes (Hospitalization)
  Sender: FDA-Public Use
  Company Number: GR-MYLANLABS-2023M1004224

PATIENT
  Age: 47 Year
  Sex: Female

DRUGS (3)
  1. OLANZAPINE [Suspect]
     Active Substance: OLANZAPINE
     Indication: Mania
     Dosage: INITIAL DOSE
     Route: 065
  2. OLANZAPINE [Suspect]
     Active Substance: OLANZAPINE
     Dosage: 20 MILLIGRAM, QD (TITRATED UP)
     Route: 065
  3. LITHIUM [Suspect]
     Active Substance: LITHIUM
     Indication: Mania
     Dosage: LITHIUM AUGMENTATION THERAPY
     Route: 065

REACTIONS (1)
  - Drug ineffective [Unknown]
